FAERS Safety Report 6629588-7 (Version None)
Quarter: 2010Q1

REPORT INFORMATION
  Report Type: 
  Country: None (occurrence: None)
  Receive Date: 20100311
  Receipt Date: 20100208
  Transmission Date: 20100710
  Serious: No
  Sender: FDA-Public Use
  Company Number: US-BAYER-201011918BCC

PATIENT
  Age: 82 Year
  Sex: Female
  Weight: 79 kg

DRUGS (7)
  1. ALEVE [Suspect]
     Indication: ARTHRITIS
     Dosage: TOTAL DAILY DOSE: 220 MG  UNIT DOSE: 220 MG
     Route: 048
     Dates: start: 20100204
  2. BAYER BACK AND BODY ASPIRIN [Suspect]
     Indication: ARTHRALGIA
     Dosage: TOTAL DAILY DOSE: 1 DF  UNIT DOSE: 1 DF
     Route: 048
     Dates: start: 20100101
  3. LEVOTHYROXINE [Concomitant]
     Route: 065
  4. FISH OIL [Concomitant]
     Route: 065
  5. CITRACAL MAXIMUM PLUS D [Concomitant]
  6. CENTRUM SILVER [Concomitant]
     Route: 065
  7. MOVE FREE [Concomitant]
     Route: 065

REACTIONS (1)
  - INSOMNIA [None]
